FAERS Safety Report 6426318-9 (Version None)
Quarter: 2009Q4

REPORT INFORMATION
  Report Type: 
  Country: None (occurrence: None)
  Receive Date: 20091104
  Receipt Date: 20091027
  Transmission Date: 20100525
  Serious: Yes (Hospitalization, Other)
  Sender: FDA-Public Use
  Company Number: ES-AMGEN-QUU363240

PATIENT
  Sex: Male

DRUGS (10)
  1. ARANESP [Suspect]
     Indication: RENAL FAILURE CHRONIC
     Route: 058
     Dates: start: 20090801
  2. CINITAPRIDE [Concomitant]
     Route: 048
  3. VENTOLIN [Concomitant]
     Route: 055
  4. UNSPECIFIED MEDICATION [Concomitant]
     Route: 048
  5. CALCIUM CARBONATE [Concomitant]
     Route: 048
  6. ADIRO [Concomitant]
     Route: 048
  7. CIPRALEX [Concomitant]
     Route: 048
  8. VESICARE [Concomitant]
     Route: 048
  9. OMEPRAZOLE [Concomitant]
     Route: 048
  10. CALCIUM RESONIUM [Concomitant]
     Route: 048

REACTIONS (7)
  - ANAEMIA [None]
  - BLOOD CREATINE PHOSPHOKINASE INCREASED [None]
  - BLOOD CREATINE PHOSPHOKINASE MB INCREASED [None]
  - BLOOD LACTATE DEHYDROGENASE INCREASED [None]
  - COLITIS ISCHAEMIC [None]
  - HYPERTENSIVE CRISIS [None]
  - OVERDOSE [None]
